FAERS Safety Report 7360868-6 (Version None)
Quarter: 2011Q1

REPORT INFORMATION
  Report Type: 
  Country: None (occurrence: None)
  Receive Date: 20110315
  Receipt Date: 20110315
  Transmission Date: 20110831
  Serious: Yes (Life-Threatening)
  Sender: FDA-Public Use
  Company Number: None

PATIENT
  Age: 61 Year
  Sex: Male
  Weight: 246.5 kg

DRUGS (4)
  1. SENSIPAR [Suspect]
     Indication: DIALYSIS
     Dosage: 30MG ONCE A DAY ORAL  ; 60MG ONCE A DAY ORAL
     Route: 048
     Dates: start: 20101201
  2. SENSIPAR [Suspect]
     Indication: PARATHYROID DISORDER
     Dosage: 30MG ONCE A DAY ORAL  ; 60MG ONCE A DAY ORAL
     Route: 048
     Dates: start: 20101201
  3. SENSIPAR [Suspect]
     Indication: DIALYSIS
     Dosage: 30MG ONCE A DAY ORAL  ; 60MG ONCE A DAY ORAL
     Route: 048
     Dates: start: 20101128, end: 20101201
  4. SENSIPAR [Suspect]
     Indication: PARATHYROID DISORDER
     Dosage: 30MG ONCE A DAY ORAL  ; 60MG ONCE A DAY ORAL
     Route: 048
     Dates: start: 20101128, end: 20101201

REACTIONS (7)
  - FATIGUE [None]
  - CONVULSION [None]
  - CYANOSIS [None]
  - HYPERHIDROSIS [None]
  - UNRESPONSIVE TO STIMULI [None]
  - FALL [None]
  - LOSS OF CONSCIOUSNESS [None]
